APPROVED DRUG PRODUCT: IPRATROPIUM BROMIDE
Active Ingredient: IPRATROPIUM BROMIDE
Strength: 0.042MG/SPRAY
Dosage Form/Route: SPRAY, METERED;NASAL
Application: A075553 | Product #001
Applicant: AUROBINDO PHARMA USA INC
Approved: Mar 31, 2003 | RLD: No | RS: No | Type: DISCN